FAERS Safety Report 9898376 (Version 1)
Quarter: 2014Q1

REPORT INFORMATION
  Report Type: Spontaneous
  Country: PH (occurrence: PH)
  Receive Date: 20140214
  Receipt Date: 20140214
  Transmission Date: 20141002
  Serious: Yes (Death, Other)
  Sender: FDA-Public Use
  Company Number: PH-009507513-1402PHL001520

PATIENT
  Sex: Female

DRUGS (1)
  1. COZAAR [Suspect]
     Dosage: 100MG IN THE MORNING AND 50MG IN EVENING OR VICE VERSA
     Route: 048
     Dates: start: 2011

REACTIONS (2)
  - Viral infection [Fatal]
  - Coma [Fatal]
